FAERS Safety Report 21854871 (Version 1)
Quarter: 2023Q1

REPORT INFORMATION
  Report Type: Spontaneous
  Country: US (occurrence: US)
  Receive Date: 20230112
  Receipt Date: 20230112
  Transmission Date: 20230418
  Serious: No
  Sender: FDA-Public Use
  Company Number: US-CHIESI-2022CHF04328

PATIENT

DRUGS (2)
  1. CUROSURF [Suspect]
     Active Substance: PORACTANT ALFA
     Indication: Product used for unknown indication
     Dosage: UNK
     Route: 065
     Dates: start: 202206, end: 202206
  2. CUROSURF [Suspect]
     Active Substance: PORACTANT ALFA
     Dosage: UNK
     Route: 065
     Dates: start: 202206

REACTIONS (3)
  - Drug effect less than expected [Unknown]
  - Intentional product use issue [Not Recovered/Not Resolved]
  - Product quality issue [Recovered/Resolved]

NARRATIVE: CASE EVENT DATE: 20220601
